FAERS Safety Report 23682242 (Version 1)
Quarter: 2024Q1

REPORT INFORMATION
  Report Type: Spontaneous
  Country: US (occurrence: None)
  Receive Date: 20240328
  Receipt Date: 20240328
  Transmission Date: 20240410
  Serious: Yes (Other)
  Sender: FDA-Public Use
  Company Number: 2024A068737

PATIENT
  Age: 28520 Day
  Sex: Male

DRUGS (2)
  1. BREZTRI [Suspect]
     Active Substance: BUDESONIDE\FORMOTEROL\GLYCOPYRROLATE
     Indication: Emphysema
     Route: 055
  2. LASIX [Concomitant]
     Active Substance: FUROSEMIDE

REACTIONS (10)
  - Pulmonary oedema [Unknown]
  - Emphysema [Unknown]
  - Contraindicated device used [Unknown]
  - Incorrect dose administered [Unknown]
  - Product dose omission issue [Unknown]
  - Wrong technique in device usage process [Unknown]
  - Arteriosclerosis [Unknown]
  - Therapy interrupted [Unknown]
  - Dyspnoea [Unknown]
  - Product dose omission in error [Unknown]

NARRATIVE: CASE EVENT DATE: 20240301
